FAERS Safety Report 14308143 (Version 2)
Quarter: 2018Q1

REPORT INFORMATION
  Report Type: Spontaneous
  Country: US (occurrence: US)
  Receive Date: 20171220
  Receipt Date: 20180215
  Transmission Date: 20180509
  Serious: Yes (Other)
  Sender: FDA-Public Use
  Company Number: US-009507513-1712USA006398

PATIENT
  Age: 37 Year
  Sex: Female
  Weight: 73.47 kg

DRUGS (1)
  1. NEXPLANON [Suspect]
     Active Substance: ETONOGESTREL
     Indication: CONTRACEPTION
     Dosage: 1 DF, IN THE LEFT ARM
     Route: 059
     Dates: start: 201512

REACTIONS (3)
  - Subclavian vein thrombosis [Not Recovered/Not Resolved]
  - Implant site swelling [Not Recovered/Not Resolved]
  - Implant site pain [Not Recovered/Not Resolved]

NARRATIVE: CASE EVENT DATE: 20171211
